FAERS Safety Report 9122921 (Version 1)
Quarter: 2013Q1

REPORT INFORMATION
  Report Type: Spontaneous
  Country: US (occurrence: US)
  Receive Date: 20130227
  Receipt Date: 20130227
  Transmission Date: 20140127
  Serious: Yes (Hospitalization)
  Sender: FDA-Public Use
  Company Number: US-BAYER-2013-023045

PATIENT
  Sex: Female

DRUGS (1)
  1. ALEVE CAPLET/TABLET,MIDOL EXTENDED RELIEF CAPLET [Suspect]
     Indication: MUSCULOSKELETAL PAIN

REACTIONS (4)
  - Anaemia [Unknown]
  - Ulcer haemorrhage [Unknown]
  - Incorrect dose administered [Unknown]
  - Cardiac disorder [Unknown]
